FAERS Safety Report 4462207-7 (Version None)
Quarter: 2004Q3

REPORT INFORMATION
  Report Type: 
  Country: None (occurrence: None)
  Receive Date: 20040929
  Receipt Date: 20040513
  Transmission Date: 20050211
  Serious: Yes (Hospitalization)
  Sender: FDA-Public Use
  Company Number: BE-ROCHE-367466

PATIENT
  Age: 53 Year
  Sex: Female
  Weight: 64 kg

DRUGS (9)
  1. PEG-INTERFERON ALFA 2A (RO 25-8310) [Suspect]
     Dosage: FORMULATION: INJECTION.
     Route: 058
     Dates: start: 20031112
  2. RIBAVIRIN [Suspect]
     Route: 048
     Dates: start: 20031112
  3. AMANTADINE HCL [Suspect]
     Route: 048
     Dates: start: 20031112
  4. LOSARTAN POTASSIUM [Concomitant]
     Dates: start: 20010615
  5. ACETAMINOPHEN [Concomitant]
     Dosage: TOTAL DAILY DOSE REPORTED AS AN
     Dates: start: 20031112
  6. UNKNOWN MEDICATIONS [Concomitant]
     Dosage: DRUG REPORTED AS ZURCALE
     Dates: start: 20031215, end: 20031222
  7. ZANTAC [Concomitant]
     Dates: start: 20031223, end: 20040615
  8. OL-AMINE [Concomitant]
     Dates: start: 20040429
  9. SEROXAT [Concomitant]
     Dates: start: 20040113, end: 20040527

REACTIONS (1)
  - DELIRIUM [None]
